FAERS Safety Report 7438369-6 (Version None)
Quarter: 2011Q2

REPORT INFORMATION
  Report Type: 
  Country: None (occurrence: None)
  Receive Date: 20110426
  Receipt Date: 20110403
  Transmission Date: 20111010
  Serious: Yes (Hospitalization)
  Sender: FDA-Public Use
  Company Number: US-BAYER-200934508NA

PATIENT
  Age: 35 Year
  Sex: Female
  Weight: 52.154 kg

DRUGS (8)
  1. FOLATE SODIUM [Concomitant]
     Dosage: 1 MG, UNK
     Route: 048
     Dates: start: 20080908
  2. IBUPROFEN [Concomitant]
  3. VICODIN [Concomitant]
     Indication: PAIN
     Dosage: 500 MG, PRN
     Dates: start: 20080908
  4. RED BLOOD CELLS [Concomitant]
     Indication: SICKLE CELL ANAEMIA
     Dosage: 2340 ML, UNK
     Route: 042
     Dates: start: 20080908
  5. YASMIN [Suspect]
     Indication: CONTRACEPTION
     Dosage: UNK
     Dates: start: 20080601, end: 20080901
  6. OCELLA [Suspect]
     Indication: CONTRACEPTION
     Dosage: UNK
     Dates: start: 20080802, end: 20080831
  7. MORPHINE [Concomitant]
     Indication: PAIN
     Dosage: 20 MG/ML, PRN
     Dates: start: 20080908
  8. ZOFRAN [Concomitant]
     Dosage: 4 MG, PRN
     Route: 042
     Dates: start: 20080908

REACTIONS (3)
  - COGNITIVE DISORDER [None]
  - PHYSICAL DISABILITY [None]
  - CEREBROVASCULAR ACCIDENT [None]
